FAERS Safety Report 25330603 (Version 1)
Quarter: 2025Q2

REPORT INFORMATION
  Report Type: Spontaneous
  Country: FR (occurrence: FR)
  Receive Date: 20250519
  Receipt Date: 20250519
  Transmission Date: 20250717
  Serious: Yes (Life-Threatening)
  Sender: MYLAN
  Company Number: None

PATIENT
  Age: 35 Year
  Sex: Female
  Weight: 65 kg

DRUGS (44)
  1. METHOTREXATE [Suspect]
     Active Substance: METHOTREXATE
     Indication: Acute biphenotypic leukaemia
     Dates: start: 20250303, end: 20250313
  2. METHOTREXATE [Suspect]
     Active Substance: METHOTREXATE
     Route: 042
     Dates: start: 20250303, end: 20250313
  3. METHOTREXATE [Suspect]
     Active Substance: METHOTREXATE
     Route: 042
     Dates: start: 20250303, end: 20250313
  4. METHOTREXATE [Suspect]
     Active Substance: METHOTREXATE
     Dates: start: 20250303, end: 20250313
  5. ICLUSIG [Suspect]
     Active Substance: PONATINIB HYDROCHLORIDE
     Indication: Acute biphenotypic leukaemia
     Dates: start: 20250312, end: 20250317
  6. ICLUSIG [Suspect]
     Active Substance: PONATINIB HYDROCHLORIDE
     Route: 048
     Dates: start: 20250312, end: 20250317
  7. ICLUSIG [Suspect]
     Active Substance: PONATINIB HYDROCHLORIDE
     Route: 048
     Dates: start: 20250312, end: 20250317
  8. ICLUSIG [Suspect]
     Active Substance: PONATINIB HYDROCHLORIDE
     Dates: start: 20250312, end: 20250317
  9. CYCLOPHOSPHAMIDE [Suspect]
     Active Substance: CYCLOPHOSPHAMIDE
     Indication: Acute biphenotypic leukaemia
     Dates: start: 20250306, end: 20250308
  10. CYCLOPHOSPHAMIDE [Suspect]
     Active Substance: CYCLOPHOSPHAMIDE
     Route: 042
     Dates: start: 20250306, end: 20250308
  11. CYCLOPHOSPHAMIDE [Suspect]
     Active Substance: CYCLOPHOSPHAMIDE
     Route: 042
     Dates: start: 20250306, end: 20250308
  12. CYCLOPHOSPHAMIDE [Suspect]
     Active Substance: CYCLOPHOSPHAMIDE
     Dates: start: 20250306, end: 20250308
  13. CYTARABINE [Suspect]
     Active Substance: CYTARABINE
     Indication: Acute biphenotypic leukaemia
     Dates: start: 20250303, end: 20250313
  14. CYTARABINE [Suspect]
     Active Substance: CYTARABINE
     Route: 042
     Dates: start: 20250303, end: 20250313
  15. CYTARABINE [Suspect]
     Active Substance: CYTARABINE
     Route: 042
     Dates: start: 20250303, end: 20250313
  16. CYTARABINE [Suspect]
     Active Substance: CYTARABINE
     Dates: start: 20250303, end: 20250313
  17. RUXIENCE [Suspect]
     Active Substance: RITUXIMAB-PVVR
     Indication: Acute biphenotypic leukaemia
     Dates: start: 20250312, end: 20250313
  18. RUXIENCE [Suspect]
     Active Substance: RITUXIMAB-PVVR
     Route: 042
     Dates: start: 20250312, end: 20250313
  19. RUXIENCE [Suspect]
     Active Substance: RITUXIMAB-PVVR
     Route: 042
     Dates: start: 20250312, end: 20250313
  20. RUXIENCE [Suspect]
     Active Substance: RITUXIMAB-PVVR
     Dates: start: 20250312, end: 20250313
  21. TRIMEBUTINE [Concomitant]
     Active Substance: TRIMEBUTINE
  22. TRIMEBUTINE [Concomitant]
     Active Substance: TRIMEBUTINE
     Route: 065
  23. TRIMEBUTINE [Concomitant]
     Active Substance: TRIMEBUTINE
     Route: 065
  24. TRIMEBUTINE [Concomitant]
     Active Substance: TRIMEBUTINE
  25. Spasfon [Concomitant]
  26. Spasfon [Concomitant]
     Route: 065
  27. Spasfon [Concomitant]
     Route: 065
  28. Spasfon [Concomitant]
  29. POSACONAZOLE [Concomitant]
     Active Substance: POSACONAZOLE
  30. POSACONAZOLE [Concomitant]
     Active Substance: POSACONAZOLE
     Route: 065
  31. POSACONAZOLE [Concomitant]
     Active Substance: POSACONAZOLE
     Route: 065
  32. POSACONAZOLE [Concomitant]
     Active Substance: POSACONAZOLE
  33. NEFOPAM HYDROCHLORIDE [Concomitant]
     Active Substance: NEFOPAM HYDROCHLORIDE
  34. NEFOPAM HYDROCHLORIDE [Concomitant]
     Active Substance: NEFOPAM HYDROCHLORIDE
     Route: 065
  35. NEFOPAM HYDROCHLORIDE [Concomitant]
     Active Substance: NEFOPAM HYDROCHLORIDE
     Route: 065
  36. NEFOPAM HYDROCHLORIDE [Concomitant]
     Active Substance: NEFOPAM HYDROCHLORIDE
  37. DEXAMETHASONE [Concomitant]
     Active Substance: DEXAMETHASONE
  38. DEXAMETHASONE [Concomitant]
     Active Substance: DEXAMETHASONE
     Route: 065
  39. DEXAMETHASONE [Concomitant]
     Active Substance: DEXAMETHASONE
     Route: 065
  40. DEXAMETHASONE [Concomitant]
     Active Substance: DEXAMETHASONE
  41. TOBRAMYCIN SULFATE [Concomitant]
     Active Substance: TOBRAMYCIN SULFATE
  42. TOBRAMYCIN SULFATE [Concomitant]
     Active Substance: TOBRAMYCIN SULFATE
     Route: 065
  43. TOBRAMYCIN SULFATE [Concomitant]
     Active Substance: TOBRAMYCIN SULFATE
     Route: 065
  44. TOBRAMYCIN SULFATE [Concomitant]
     Active Substance: TOBRAMYCIN SULFATE

REACTIONS (1)
  - Septic shock [Recovering/Resolving]

NARRATIVE: CASE EVENT DATE: 20250316
